FAERS Safety Report 10609401 (Version 1)
Quarter: 2014Q4

REPORT INFORMATION
  Report Type: Report from Study
  Country: NL (occurrence: NL)
  Receive Date: 20141126
  Receipt Date: 20141126
  Transmission Date: 20150529
  Serious: Yes (Other)
  Sender: FDA-Public Use
  Company Number: NL-AMGEN-NLDSL2012086846

PATIENT
  Age: 60 Year
  Sex: Female

DRUGS (1)
  1. NEULASTA [Suspect]
     Active Substance: PEGFILGRASTIM
     Indication: PRODUCT USED FOR UNKNOWN INDICATION
     Dosage: 6 MG, Q2WK
     Route: 065

REACTIONS (12)
  - Cardiac disorder [Unknown]
  - Unevaluable event [Unknown]
  - Fatigue [Recovering/Resolving]
  - Nausea [Unknown]
  - Dyspnoea exertional [Unknown]
  - Malaise [Unknown]
  - Dyspnoea [Unknown]
  - Decreased appetite [Recovering/Resolving]
  - Bone pain [Unknown]
  - Headache [Unknown]
  - Dizziness [Unknown]
  - General physical condition abnormal [Unknown]
